FAERS Safety Report 7307917 (Version 4)
Quarter: 2015Q4

REPORT INFORMATION
  Report Type: Report from Study
  Country: JP (occurrence: JP)
  Receive Date: 20100308
  Receipt Date: 20151118
  Transmission Date: 20160305
  Serious: Yes (Death, Hospitalization, Disabling)
  Sender: FDA-Public Use
  Company Number: PHHY2009JP14961

PATIENT
  Age: 80 Year
  Sex: Female
  Weight: 42 kg

DRUGS (10)
  1. ICL670A [Suspect]
     Active Substance: DEFERASIROX
     Indication: IRON OVERLOAD
     Dosage: 500 MG, QD (DAILY)
     Route: 048
     Dates: start: 20080730, end: 20080831
  2. NORVASC [Concomitant]
     Active Substance: AMLODIPINE BESYLATE
     Indication: PRODUCT USED FOR UNKNOWN INDICATION
     Dosage: 5 MG, UNK
     Route: 048
     Dates: start: 2006, end: 20081230
  3. ICL670A [Suspect]
     Active Substance: DEFERASIROX
     Dosage: 750 MG, QD
     Route: 048
     Dates: start: 20080901, end: 20080922
  4. ICL670A [Suspect]
     Active Substance: DEFERASIROX
     Dosage: 500 MG, QD (DAILY)
     Route: 048
     Dates: start: 20080923, end: 20080925
  5. ICL670A [Suspect]
     Active Substance: DEFERASIROX
     Dosage: 500 MG, QD
     Route: 048
     Dates: start: 20080923, end: 20080925
  6. DESFERAL [Concomitant]
     Active Substance: DEFEROXAMINE MESYLATE
     Indication: PRODUCT USED FOR UNKNOWN INDICATION
     Dosage: 500 MG, UNK
     Route: 030
  7. ICL670A [Suspect]
     Active Substance: DEFERASIROX
     Dosage: 750 MG, QD (DAILY)
     Route: 048
     Dates: start: 20080901, end: 20080922
  8. TOWAMIN [Concomitant]
     Active Substance: ATENOLOL
     Indication: PRODUCT USED FOR UNKNOWN INDICATION
     Dosage: 50 MG, UNK
     Route: 048
     Dates: start: 2006, end: 20090102
  9. RED BLOOD CELLS, CONCENTRATED [Concomitant]
     Active Substance: HUMAN RED BLOOD CELL
     Indication: PRODUCT USED FOR UNKNOWN INDICATION
     Dosage: 2 UNITS EVERY 2 TO 4 WEEKS
     Route: 065
     Dates: start: 20080901, end: 20090216
  10. ICL670A [Suspect]
     Active Substance: DEFERASIROX
     Dosage: 500 MG, QD
     Route: 048
     Dates: start: 20080730, end: 20080831

REACTIONS (4)
  - Pigmentation disorder [Unknown]
  - Renal failure [Not Recovered/Not Resolved]
  - Visual impairment [Not Recovered/Not Resolved]
  - Aortic aneurysm rupture [Fatal]

NARRATIVE: CASE EVENT DATE: 20080924
